FAERS Safety Report 23321865 (Version 1)
Quarter: 2023Q4

REPORT INFORMATION
  Report Type: Spontaneous
  Country: US (occurrence: US)
  Receive Date: 20231220
  Receipt Date: 20231220
  Transmission Date: 20240109
  Serious: No
  Sender: FDA-Public Use
  Company Number: US-PFIZER INC-PV202300200020

PATIENT
  Sex: Female

DRUGS (4)
  1. NIFEDIPINE [Suspect]
     Active Substance: NIFEDIPINE
     Dosage: UNK
  2. LENVIMA [Suspect]
     Active Substance: LENVATINIB
     Indication: Endometrial cancer
     Dosage: 14 MG, DAILY (14 MG, DAILY 10MG X 4 MG) 5DAY PK
     Route: 048
     Dates: start: 20231026, end: 20231123
  3. LENVIMA [Suspect]
     Active Substance: LENVATINIB
     Dosage: 10 MG, DAILY
     Dates: start: 20231126
  4. ELIQUIS [Concomitant]
     Active Substance: APIXABAN
     Dosage: 5 MG

REACTIONS (3)
  - Urine abnormality [Recovering/Resolving]
  - Platelet count decreased [Not Recovered/Not Resolved]
  - Pain in extremity [Not Recovered/Not Resolved]
